FAERS Safety Report 9311913 (Version 1)
Quarter: 2013Q1

REPORT INFORMATION
  Report Type: Spontaneous
  Country: US (occurrence: None)
  Receive Date: 20130211
  Receipt Date: 20130211
  Transmission Date: 20140127
  Serious: Yes (Hospitalization)
  Sender: FDA-Public Use
  Company Number: 1205-268

PATIENT
  Age: 48 Year
  Sex: Male
  Weight: 135.1 kg

DRUGS (7)
  1. RILONACEPT [Suspect]
     Indication: GOUT
     Dosage: 80 MG, 1 IN 1 WK, SC
     Route: 058
     Dates: start: 20120119, end: 20120517
  2. PREDISONE [Suspect]
     Indication: GOUT
     Dosage: 40 MG, 1 IN 1 D, ORAL
     Route: 048
     Dates: start: 20120503, end: 20120510
  3. COLCRYS (COLCHICINE) [Concomitant]
  4. ALLOPURINOL [Concomitant]
  5. KETOROLAC (KETOROLAC) [Concomitant]
  6. ADDERALL (OBETROL/01345401/) [Concomitant]
  7. IBUPROFEN (IBUPROFEN) [Concomitant]

REACTIONS (12)
  - Cellulitis [None]
  - Erythema nodosum [None]
  - Wound [None]
  - Tachycardia [None]
  - Sepsis [None]
  - Dizziness [None]
  - Dizziness [None]
  - Hypotension [None]
  - Lymphadenitis [None]
  - Blood creatinine increased [None]
  - Glomerular filtration rate decreased [None]
  - Blood pressure systolic increased [None]
